FAERS Safety Report 10754664 (Version 1)
Quarter: 2015Q1

REPORT INFORMATION
  Report Type: Spontaneous
  Country: US (occurrence: None)
  Receive Date: 20150130
  Receipt Date: 20150130
  Transmission Date: 20150721
  Serious: Yes (Other)
  Sender: FDA-Public Use
  Company Number: None

PATIENT
  Age: 68 Year
  Sex: Male
  Weight: 90.72 kg

DRUGS (3)
  1. PREDNISONE. [Concomitant]
     Active Substance: PREDNISONE
  2. AMOXICILLIN AND CLAVULANATE [Suspect]
     Active Substance: AMOXICILLIN\CLAVULANIC ACID
     Indication: EAR INFECTION
     Dosage: T TABLET, BID, ORAL
     Route: 048
     Dates: start: 20150128, end: 20150129
  3. AMOXICILLIN AND CLAVULANATE [Suspect]
     Active Substance: AMOXICILLIN\CLAVULANIC ACID
     Indication: RHINITIS
     Dosage: T TABLET, BID, ORAL
     Route: 048
     Dates: start: 20150128, end: 20150129

REACTIONS (4)
  - Dizziness [None]
  - Mood swings [None]
  - Headache [None]
  - Hallucination, auditory [None]

NARRATIVE: CASE EVENT DATE: 20150129
